FAERS Safety Report 23420656 (Version 2)
Quarter: 2024Q1

REPORT INFORMATION
  Report Type: Spontaneous
  Country: US (occurrence: US)
  Receive Date: 20240119
  Receipt Date: 20240211
  Transmission Date: 20240410
  Serious: Yes (Other)
  Sender: FDA-Public Use
  Company Number: US-SANOFI-01906132

PATIENT
  Age: 45 Year
  Sex: Female

DRUGS (1)
  1. LANTUS SOLOSTAR [Suspect]
     Active Substance: INSULIN GLARGINE
     Indication: Type 2 diabetes mellitus
     Dosage: 50 IU, BID
     Route: 065

REACTIONS (3)
  - Ketoacidosis [Unknown]
  - Blood glucose increased [Unknown]
  - Inappropriate schedule of product administration [Unknown]
